FAERS Safety Report 15893920 (Version 1)
Quarter: 2019Q1

REPORT INFORMATION
  Report Type: Spontaneous
  Country: US (occurrence: US)
  Receive Date: 20190130
  Receipt Date: 20190130
  Transmission Date: 20190417
  Serious: Yes (Disabling)
  Sender: FDA-Public Use
  Company Number: None

PATIENT
  Age: 29 Year
  Sex: Female
  Weight: 54 kg

DRUGS (4)
  1. PROBIOTIC [Concomitant]
     Active Substance: PROBIOTICS NOS
  2. GLUCOSAMINE SUPPLEMENT [Concomitant]
  3. MONISTAT 1 COMBINATION PACK TRIPLE ACTION [Suspect]
     Active Substance: MICONAZOLE NITRATE
     Indication: FUNGAL INFECTION
     Route: 067
     Dates: start: 20190128, end: 20190128
  4. DAILY MULTIVITAMIN [Concomitant]
     Active Substance: VITAMINS

REACTIONS (5)
  - Vulvovaginal injury [None]
  - Vulvovaginal swelling [None]
  - Pain [None]
  - Chemical burn [None]
  - Vulvovaginal erythema [None]

NARRATIVE: CASE EVENT DATE: 20190128
